FAERS Safety Report 19221798 (Version 1)
Quarter: 2021Q2

REPORT INFORMATION
  Report Type: Report from Study
  Country: AR (occurrence: AR)
  Receive Date: 20210506
  Receipt Date: 20210506
  Transmission Date: 20210717
  Serious: Yes (Other)
  Sender: FDA-Public Use
  Company Number: NVSC2021AR093059

PATIENT
  Sex: Female

DRUGS (4)
  1. AFINITOR [Suspect]
     Active Substance: EVEROLIMUS
     Indication: NEUROENDOCRINE TUMOUR
     Dosage: 10 MG
     Route: 065
  2. SANDOSTATIN LAR DEPOT [Suspect]
     Active Substance: OCTREOTIDE ACETATE
     Indication: LUNG NEOPLASM
     Dosage: UNK (2 YEARS AGO)
     Route: 065
  3. SANDOSTATIN LAR DEPOT [Suspect]
     Active Substance: OCTREOTIDE ACETATE
     Indication: SMALL INTESTINE CARCINOMA
  4. SANDOSTATIN LAR DEPOT [Suspect]
     Active Substance: OCTREOTIDE ACETATE

REACTIONS (5)
  - Product use in unapproved indication [Unknown]
  - Drug hypersensitivity [Unknown]
  - Aphthous ulcer [Unknown]
  - Neoplasm progression [Unknown]
  - Pruritus [Unknown]
